FAERS Safety Report 7889220-1 (Version None)
Quarter: 2011Q4

REPORT INFORMATION
  Report Type: 
  Country: None (occurrence: None)
  Receive Date: 20111103
  Receipt Date: 20111031
  Transmission Date: 20120403
  Serious: Yes (Hospitalization)
  Sender: FDA-Public Use
  Company Number: PT-MERCK-1110PRT00009

PATIENT
  Age: 69 Year
  Sex: Male
  Weight: 83 kg

DRUGS (9)
  1. FUROSEMIDE [Concomitant]
     Indication: HYPERTENSION
     Route: 048
     Dates: end: 20111019
  2. SIMVASTATIN [Concomitant]
     Indication: HYPERCHOLESTEROLAEMIA
     Route: 048
  3. JANUVIA [Suspect]
     Indication: TYPE 2 DIABETES MELLITUS
     Route: 048
     Dates: start: 20110715, end: 20111019
  4. PHENOBARBITAL [Concomitant]
     Indication: SEDATION
     Route: 048
  5. ASPIRIN [Concomitant]
     Indication: CORONARY ARTERY DISEASE
     Route: 048
  6. GLICLAZIDE [Concomitant]
     Indication: TYPE 2 DIABETES MELLITUS
     Route: 048
  7. TELMISARTAN [Concomitant]
     Indication: HYPERTENSION
     Route: 048
  8. AMLODIPINE BESYLATE AND PERINDOPRIL ARGININE [Concomitant]
     Indication: HYPERTENSION
     Route: 048
  9. METOLAZONE [Concomitant]
     Indication: HYPERTENSION
     Route: 048
     Dates: end: 20111019

REACTIONS (4)
  - HYPERURICAEMIA [None]
  - CONFUSIONAL STATE [None]
  - HYPOCALCAEMIA [None]
  - RENAL FAILURE CHRONIC [None]
